FAERS Safety Report 15152541 (Version 2)
Quarter: 2019Q2

REPORT INFORMATION
  Report Type: Report from Study
  Country: US (occurrence: US)
  Receive Date: 20180717
  Receipt Date: 20190517
  Transmission Date: 20190711
  Serious: Yes (Other)
  Sender: FDA-Public Use
  Company Number: US-ROCHE-2155329

PATIENT
  Age: 41 Year
  Sex: Female
  Weight: 69.92 kg

DRUGS (5)
  1. XOLAIR [Suspect]
     Active Substance: OMALIZUMAB
     Indication: ASTHMA
  2. XOLAIR [Suspect]
     Active Substance: OMALIZUMAB
     Indication: ASTHMA
     Route: 058
  3. XOLAIR [Suspect]
     Active Substance: OMALIZUMAB
     Indication: VASOMOTOR RHINITIS
  4. XOLAIR [Suspect]
     Active Substance: OMALIZUMAB
     Indication: RHINITIS ALLERGIC
     Dosage: ONGOING:NO
     Route: 058
     Dates: start: 2010, end: 201806
  5. XOLAIR [Suspect]
     Active Substance: OMALIZUMAB
     Indication: RHINITIS ALLERGIC

REACTIONS (2)
  - Sinusitis [Not Recovered/Not Resolved]
  - Renal stone removal [Recovered/Resolved]

NARRATIVE: CASE EVENT DATE: 201801
